FAERS Safety Report 9313394 (Version 1)
Quarter: 2013Q2

REPORT INFORMATION
  Report Type: Report from Study
  Country: US (occurrence: US)
  Receive Date: 20130528
  Receipt Date: 20130528
  Transmission Date: 20140414
  Serious: No
  Sender: FDA-Public Use
  Company Number: US-ABBOTT-13P-163-1066386-00

PATIENT
  Age: 34 Year
  Sex: Male
  Weight: 116.22 kg

DRUGS (2)
  1. ANDROGEL [Suspect]
     Indication: BLOOD TESTOSTERONE DECREASED
     Dosage: 2 PUMPS
     Route: 061
     Dates: start: 201301
  2. LISINOPRIL HCTZ [Concomitant]
     Dosage: 20/25 MG

REACTIONS (3)
  - Application site pain [Not Recovered/Not Resolved]
  - Application site dryness [Not Recovered/Not Resolved]
  - Skin fissures [Unknown]
